FAERS Safety Report 5424899-5 (Version None)
Quarter: 2007Q3

REPORT INFORMATION
  Report Type: 
  Country: None (occurrence: None)
  Receive Date: 20070824
  Receipt Date: 20070814
  Transmission Date: 20080115
  Serious: Yes (Other)
  Sender: FDA-Public Use
  Company Number: FR-SP-2006-00757

PATIENT
  Age: 71 Year
  Sex: Male

DRUGS (1)
  1. IMMUCYST [Suspect]
     Indication: CARCINOMA IN SITU OF BLADDER
     Route: 043
     Dates: end: 20041201

REACTIONS (5)
  - BLADDER DISORDER [None]
  - CONTRACTED BLADDER [None]
  - CYSTITIS [None]
  - HYDRONEPHROSIS [None]
  - POLLAKIURIA [None]
